FAERS Safety Report 5866610-X (Version None)
Quarter: 2008Q3

REPORT INFORMATION
  Report Type: 
  Country: None (occurrence: None)
  Receive Date: 20080827
  Receipt Date: 20080819
  Transmission Date: 20090109
  Serious: Yes (Other)
  Sender: FDA-Public Use
  Company Number: TUK2008A00098

PATIENT
  Age: 57 Year
  Sex: Male

DRUGS (5)
  1. ACTOS [Suspect]
     Indication: TYPE 2 DIABETES MELLITUS
     Dosage: 30 MG, ORAL
     Route: 048
     Dates: start: 20080601, end: 20080701
  2. ASPIRIN [Concomitant]
  3. ATORVASTATIN CALCIUM [Concomitant]
  4. GLICLAZIDE (GLICLAZIDE) [Concomitant]
  5. METFORMIN (METFDRMIN) [Concomitant]

REACTIONS (2)
  - ARTHRALGIA [None]
  - HEADACHE [None]
